FAERS Safety Report 6545321-1 (Version None)
Quarter: 2010Q1

REPORT INFORMATION
  Report Type: 
  Country: None (occurrence: None)
  Receive Date: 20100121
  Receipt Date: 20100114
  Transmission Date: 20100710
  Serious: Yes (Other)
  Sender: FDA-Public Use
  Company Number: US-MERCK-1001USA01223

PATIENT
  Age: 65 Year
  Sex: Female
  Weight: 52 kg

DRUGS (1)
  1. FOSAMAX [Suspect]
     Indication: OSTEOPENIA
     Route: 048
     Dates: start: 19950101

REACTIONS (6)
  - BONE DENSITY DECREASED [None]
  - ERYTHEMA [None]
  - FALL [None]
  - HIP FRACTURE [None]
  - OEDEMA PERIPHERAL [None]
  - WRIST FRACTURE [None]
